FAERS Safety Report 8007864-3 (Version None)
Quarter: 2011Q4

REPORT INFORMATION
  Report Type: 
  Country: None (occurrence: None)
  Receive Date: 20111227
  Receipt Date: 20111216
  Transmission Date: 20120403
  Serious: Yes (Other)
  Sender: FDA-Public Use
  Company Number: JP-UCBSA-047437

PATIENT
  Age: 40 Year
  Sex: Female

DRUGS (3)
  1. XYZAL [Suspect]
     Indication: URTICARIA THERMAL
     Route: 048
     Dates: start: 20111128, end: 20111129
  2. EPINASTINE HYDROCHLORIDE [Concomitant]
     Route: 048
     Dates: start: 20111130
  3. EPINASTINE HYDROCHLORIDE [Concomitant]
     Route: 048
     Dates: start: 20110120, end: 20111123

REACTIONS (6)
  - HEAD DISCOMFORT [None]
  - DYSPNOEA [None]
  - SOMNAMBULISM [None]
  - WHEEZING [None]
  - EUPHORIC MOOD [None]
  - DELIRIUM [None]
